FAERS Safety Report 14576743 (Version 1)
Quarter: 2018Q1

REPORT INFORMATION
  Report Type: Spontaneous
  Country: DK (occurrence: DK)
  Receive Date: 20180227
  Receipt Date: 20180227
  Transmission Date: 20180509
  Serious: Yes (Other)
  Sender: FDA-Public Use
  Company Number: DK-CIPLA LTD.-2018DK06252

PATIENT

DRUGS (5)
  1. DONEPEZIL. [Suspect]
     Active Substance: DONEPEZIL
     Indication: DEMENTIA ALZHEIMER^S TYPE
     Dosage: 10 MG, ONE DAY (STYRKE: 10 MG)
     Route: 048
     Dates: start: 20151126
  2. CRESTOR [Concomitant]
     Active Substance: ROSUVASTATIN CALCIUM
     Indication: HYPERCHOLESTEROLAEMIA
     Dosage: 20 MG, ONE DAY (STYRKE: 20 MG)
     Route: 048
     Dates: start: 20151126
  3. ENALAPRIL                          /00574902/ [Concomitant]
     Active Substance: ENALAPRIL
     Indication: HYPERTENSION
     Dosage: 20 MG, ONE DAY (STYRKE: 10 MG)
     Route: 048
     Dates: start: 20151126, end: 20180109
  4. AMLODIPINE [Concomitant]
     Active Substance: AMLODIPINE BESYLATE
     Indication: HYPERTENSION
     Dosage: 5 MG, ONE DAY (STYRKE: 5 MG)
     Route: 048
     Dates: start: 20151126, end: 20180109
  5. ACETYLSALICYLSYRE [Concomitant]
     Active Substance: ASPIRIN
     Indication: ANTICOAGULANT THERAPY
     Dosage: 75 MG, ONE DAY (STYRKE: 75 MG)
     Route: 048
     Dates: start: 20151126

REACTIONS (1)
  - Electrocardiogram QT prolonged [Recovered/Resolved]

NARRATIVE: CASE EVENT DATE: 20180108
